APPROVED DRUG PRODUCT: IBUPROFEN
Active Ingredient: IBUPROFEN
Strength: 800MG
Dosage Form/Route: TABLET;ORAL
Application: A072004 | Product #001
Applicant: PH HEALTH LTD
Approved: Nov 18, 1987 | RLD: No | RS: No | Type: DISCN